FAERS Safety Report 20620327 (Version 1)
Quarter: 2022Q1

REPORT INFORMATION
  Report Type: Spontaneous
  Country: US (occurrence: US)
  Receive Date: 20220322
  Receipt Date: 20220322
  Transmission Date: 20220423
  Serious: Yes (Other)
  Sender: FDA-Public Use
  Company Number: US-GLAXOSMITHKLINE-US2022GSK048984

PATIENT
  Sex: Female

DRUGS (2)
  1. ZANTAC [Suspect]
     Active Substance: RANITIDINE HYDROCHLORIDE
     Indication: Oropharyngeal pain
     Dosage: 300 MG, WE
     Route: 065
     Dates: start: 200704, end: 201208
  2. ZANTAC [Suspect]
     Active Substance: RANITIDINE HYDROCHLORIDE
     Indication: Oropharyngeal pain
     Dosage: 300 MG, WE
     Route: 065
     Dates: start: 200704, end: 201208

REACTIONS (1)
  - Gastric cancer [Unknown]
